FAERS Safety Report 6763672-2 (Version None)
Quarter: 2010Q2

REPORT INFORMATION
  Report Type: 
  Country: None (occurrence: None)
  Receive Date: 20100610
  Receipt Date: 20100531
  Transmission Date: 20101027
  Serious: Yes (Hospitalization)
  Sender: FDA-Public Use
  Company Number: CA-JNJFOC-20100308163

PATIENT
  Sex: Male
  Weight: 161.48 kg

DRUGS (7)
  1. REMICADE [Suspect]
     Indication: CROHN'S DISEASE
     Route: 042
  2. REMICADE [Suspect]
     Route: 042
  3. REMICADE [Suspect]
     Dosage: 28 DOSES OF INFLIXIMAB
     Route: 042
  4. IMURAN [Concomitant]
     Route: 048
  5. VENTOLIN [Concomitant]
  6. ADVAIR DISKUS 100/50 [Concomitant]
  7. PREDNISONE [Concomitant]
     Route: 048

REACTIONS (4)
  - CELLULITIS [None]
  - GOUT [None]
  - INFECTION [None]
  - PYODERMA GANGRENOSUM [None]
